FAERS Safety Report 4998355-2 (Version None)
Quarter: 2006Q2

REPORT INFORMATION
  Report Type: 
  Country: None (occurrence: None)
  Receive Date: 20060510
  Receipt Date: 20060502
  Transmission Date: 20061013
  Serious: Yes (Other)
  Sender: FDA-Public Use
  Company Number: PHBS2006NL06740

PATIENT
  Sex: Female

DRUGS (1)
  1. NEORAL [Suspect]
     Indication: LICHEN PLANUS
     Dosage: 300 MG/D
     Route: 048
     Dates: start: 20010101

REACTIONS (5)
  - ANAL HAEMORRHAGE [None]
  - GASTROINTESTINAL DISORDER [None]
  - INTESTINAL POLYP [None]
  - RENAL FAILURE [None]
  - WEIGHT INCREASED [None]
